FAERS Safety Report 10082472 (Version 1)
Quarter: 2014Q1

REPORT INFORMATION
  Report Type: Spontaneous
  Country: US (occurrence: None)
  Receive Date: 20140324
  Receipt Date: 20140324
  Transmission Date: 20141002
  Serious: Yes (Hospitalization, Disabling)
  Sender: FDA-Public Use
  Company Number: 152877

PATIENT
  Age: 68 Year
  Sex: Female
  Weight: 53.98 kg

DRUGS (1)
  1. ADRIAMYCIN [Suspect]
     Indication: PRODUCT USED FOR UNKNOWN INDICATION

REACTIONS (6)
  - Ejection fraction decreased [None]
  - Dyspnoea [None]
  - Nausea [None]
  - Vomiting [None]
  - Diarrhoea [None]
  - Liver function test abnormal [None]
